FAERS Safety Report 18489745 (Version 1)
Quarter: 2020Q4

REPORT INFORMATION
  Report Type: Spontaneous
  Country: US (occurrence: US)
  Receive Date: 20201110
  Receipt Date: 20201110
  Transmission Date: 20210114
  Serious: Yes (Hospitalization)
  Sender: FDA-Public Use
  Company Number: None

PATIENT
  Age: 34 Year
  Sex: Female

DRUGS (2)
  1. HUMIRA [Suspect]
     Active Substance: ADALIMUMAB
     Indication: CROHN^S DISEASE
     Route: 058
     Dates: start: 20191020
  2. GLATIRAMER [Concomitant]
     Active Substance: GLATIRAMER

REACTIONS (2)
  - Localised infection [None]
  - Skin laceration [None]

NARRATIVE: CASE EVENT DATE: 20201102
